FAERS Safety Report 10904180 (Version 2)
Quarter: 2015Q2

REPORT INFORMATION
  Report Type: Spontaneous
  Country: JP (occurrence: None)
  Receive Date: 20150306
  Receipt Date: 20150420
  Transmission Date: 20150821
  Serious: Yes (Other)
  Sender: FDA-Public Use
  Company Number: JP2015JPN023660

PATIENT
  Age: 54 Year

DRUGS (4)
  1. TIVICAY [Suspect]
     Active Substance: DOLUTEGRAVIR SODIUM
     Indication: HIV INFECTION
     Route: 048
     Dates: start: 20141220, end: 20150220
  2. EPZICOM [Suspect]
     Active Substance: ABACAVIR SULFATE\LAMIVUDINE
     Indication: HIV INFECTION
     Route: 048
     Dates: start: 20141220, end: 20150220
  3. CRESTOR [Concomitant]
     Active Substance: ROSUVASTATIN CALCIUM
  4. EPADEL (ETHYL ICOSAPENTATE) [Concomitant]
     Active Substance: ETHYL ICOSAPENTATE

REACTIONS (6)
  - Hepatic function abnormal [None]
  - Chills [None]
  - Malaise [None]
  - Face oedema [None]
  - Hypersensitivity [None]
  - Drug-induced liver injury [None]

NARRATIVE: CASE EVENT DATE: 201501
